FAERS Safety Report 7072208-0 (Version None)
Quarter: 2010Q4

REPORT INFORMATION
  Report Type: 
  Country: None (occurrence: None)
  Receive Date: 20101029
  Receipt Date: 20091218
  Transmission Date: 20110411
  Serious: No
  Sender: FDA-Public Use
  Company Number: A0835941A

PATIENT
  Age: 73 Year
  Sex: Female

DRUGS (11)
  1. ADVAIR DISKUS 100/50 [Suspect]
     Dosage: 1PUFF PER DAY
     Route: 055
     Dates: start: 20090601
  2. ZOMETA [Concomitant]
  3. CENTRUM SILVER [Concomitant]
  4. WELCHOL [Concomitant]
  5. METFORMIN [Concomitant]
  6. FENOFIBRATE [Concomitant]
  7. ASPIRIN [Concomitant]
  8. CALTRATE + D [Concomitant]
  9. ASCORBIC ACID [Concomitant]
  10. IRON [Concomitant]
  11. VITAMINS [Concomitant]

REACTIONS (1)
  - URINARY TRACT INFECTION [None]
